FAERS Safety Report 16767033 (Version 1)
Quarter: 2019Q3

REPORT INFORMATION
  Report Type: Spontaneous
  Country: US (occurrence: US)
  Receive Date: 20190715
  Receipt Date: 20190715
  Transmission Date: 20191005
  Serious: Yes (Other)
  Sender: FDA-Public Use
  Company Number: None

PATIENT
  Age: 65 Year
  Sex: Male
  Weight: 75.3 kg

DRUGS (5)
  1. JANUVIA [Concomitant]
     Active Substance: SITAGLIPTIN PHOSPHATE
  2. ZOCOR (SIMVIASTATIN), 5MG ONCE DAILY [Concomitant]
  3. CIPROFLOXACIN HCL [Suspect]
     Active Substance: CIPROFLOXACIN HYDROCHLORIDE
     Indication: URINARY TRACT INFECTION
     Route: 048
     Dates: start: 20190402, end: 20190405
  4. LOPRESOR (METOPROLOL), 25MG, TWICE DAILY [Concomitant]
  5. CALCIUM CITRATE (UROCITE), 10MEQ, THREE TIMES DAILY [Concomitant]

REACTIONS (5)
  - Gait inability [None]
  - Gait disturbance [None]
  - Tendon pain [None]
  - Arthralgia [None]
  - Quality of life decreased [None]

NARRATIVE: CASE EVENT DATE: 20190406
